FAERS Safety Report 15560592 (Version 3)
Quarter: 2019Q1

REPORT INFORMATION
  Report Type: Spontaneous
  Country: US (occurrence: US)
  Receive Date: 20181029
  Receipt Date: 20190122
  Transmission Date: 20190417
  Serious: No
  Sender: FDA-Public Use
  Company Number: US-VIIV HEALTHCARE LIMITED-US2018190250

PATIENT
  Sex: Female

DRUGS (2)
  1. SELZENTRY [Suspect]
     Active Substance: MARAVIROC
     Indication: NEOPLASM MALIGNANT
     Dosage: 300 MG, UNK
  2. SELZENTRY [Suspect]
     Active Substance: MARAVIROC
     Indication: LUNG NEOPLASM

REACTIONS (2)
  - Off label use [Unknown]
  - Product use in unapproved indication [Unknown]
